FAERS Safety Report 8599263-0 (Version None)
Quarter: 2012Q3

REPORT INFORMATION
  Report Type: 
  Country: None (occurrence: None)
  Receive Date: 20120816
  Receipt Date: 20120322
  Transmission Date: 20120928
  Serious: No
  Sender: FDA-Public Use
  Company Number: US-AMGEN-USASP2012018870

PATIENT
  Age: 57 Year
  Sex: Female
  Weight: 53.515 kg

DRUGS (1)
  1. FILGRASTIM [Suspect]
     Indication: HEPATITIS C
     Dosage: UNK

REACTIONS (10)
  - WHITE BLOOD CELL COUNT DECREASED [None]
  - INSOMNIA [None]
  - SPEECH DISORDER [None]
  - HYPERHIDROSIS [None]
  - COGNITIVE DISORDER [None]
  - HOT FLUSH [None]
  - ALOPECIA [None]
  - WEIGHT INCREASED [None]
  - DRY SKIN [None]
  - ARTHRALGIA [None]
